FAERS Safety Report 9172064 (Version 1)
Quarter: 2013Q1

REPORT INFORMATION
  Report Type: Spontaneous
  Country: US (occurrence: US)
  Receive Date: 20130319
  Receipt Date: 20130319
  Transmission Date: 20140127
  Serious: No
  Sender: FDA-Public Use
  Company Number: US-BAYER-2013-031246

PATIENT
  Age: 69 Year
  Sex: Male

DRUGS (9)
  1. STAXYN (FDT/ODT) [Suspect]
     Indication: ERECTILE DYSFUNCTION
     Dosage: 10 MG, OW
     Route: 048
     Dates: start: 20130223, end: 20130309
  2. BRANDING [Concomitant]
  3. METFORMIN [Concomitant]
  4. ATACAND [CANDESARTAN CILEXETIL] [Concomitant]
  5. ALLOPURINOL [Concomitant]
  6. LEVOTHYROXINE [Concomitant]
  7. METHIMAZOLE [Concomitant]
  8. TOPROL [Concomitant]
  9. SIMVASTATIN [Concomitant]

REACTIONS (1)
  - Constipation [Not Recovered/Not Resolved]
